FAERS Safety Report 19610973 (Version 4)
Quarter: 2021Q3

REPORT INFORMATION
  Report Type: Spontaneous
  Country: US (occurrence: US)
  Receive Date: 20210726
  Receipt Date: 20210910
  Transmission Date: 20211014
  Serious: No
  Sender: FDA-Public Use
  Company Number: US-BIOGEN-2021BI01033129

PATIENT
  Age: 33 Year
  Sex: Female

DRUGS (3)
  1. TYSABRI [Suspect]
     Active Substance: NATALIZUMAB
     Dosage: 3 DOSES
     Route: 065
     Dates: start: 20200110, end: 20200518
  2. TYSABRI [Suspect]
     Active Substance: NATALIZUMAB
     Dosage: 1 DOSE
     Route: 065
     Dates: start: 20200708, end: 20200708
  3. TYSABRI [Suspect]
     Active Substance: NATALIZUMAB
     Indication: MULTIPLE SCLEROSIS
     Dosage: 11 DOSES
     Route: 065
     Dates: start: 20190214, end: 20191129

REACTIONS (1)
  - Prescribed underdose [Recovered/Resolved]

NARRATIVE: CASE EVENT DATE: 20200110
